FAERS Safety Report 12979148 (Version 3)
Quarter: 2017Q1

REPORT INFORMATION
  Report Type: Spontaneous
  Country: BR (occurrence: BR)
  Receive Date: 20161128
  Receipt Date: 20170109
  Transmission Date: 20170428
  Serious: Yes (Other)
  Sender: FDA-Public Use
  Company Number: BR-GLAXOSMITHKLINE-BR2016GSK087434

PATIENT
  Sex: Female
  Weight: 63 kg

DRUGS (3)
  1. BENLYSTA [Suspect]
     Active Substance: BELIMUMAB
     Dosage: UNK
     Dates: start: 20161017
  2. BENLYSTA [Suspect]
     Active Substance: BELIMUMAB
     Indication: SYSTEMIC LUPUS ERYTHEMATOSUS
     Dosage: UNK
     Dates: start: 20160315
  3. BENLYSTA [Suspect]
     Active Substance: BELIMUMAB
     Dosage: UNK
     Dates: start: 20161213

REACTIONS (8)
  - Rhinorrhoea [Unknown]
  - Circumstance or information capable of leading to medication error [Not Recovered/Not Resolved]
  - Medication error [Unknown]
  - Inappropriate schedule of drug administration [Unknown]
  - Nasopharyngitis [Unknown]
  - Varicose vein [Unknown]
  - Swelling [Unknown]
  - Inappropriate schedule of drug administration [Not Recovered/Not Resolved]
